FAERS Safety Report 9188150 (Version 1)
Quarter: 2013Q1

REPORT INFORMATION
  Report Type: Spontaneous
  Country: GB (occurrence: GB)
  Receive Date: 20130325
  Receipt Date: 20130325
  Transmission Date: 20140127
  Serious: Yes (Other)
  Sender: FDA-Public Use
  Company Number: GB-ASTRAZENECA-2013SE17650

PATIENT
  Age: 63 Year
  Sex: Female
  Weight: 78.9 kg

DRUGS (2)
  1. BRILIQUE [Suspect]
     Route: 048
     Dates: start: 20121213, end: 20130124
  2. GLYCERYL TRINITRATE [Concomitant]
     Dates: start: 20121008, end: 20121231

REACTIONS (3)
  - Essential hypertension [Recovered/Resolved]
  - Fatigue [Recovered/Resolved]
  - Dyspnoea [Recovered/Resolved]
